FAERS Safety Report 15981291 (Version 1)
Quarter: 2019Q1

REPORT INFORMATION
  Report Type: Spontaneous
  Country: IT (occurrence: IT)
  Receive Date: 20190219
  Receipt Date: 20190219
  Transmission Date: 20190418
  Serious: Yes (Other)
  Sender: FDA-Public Use
  Company Number: PHHY2019IT024069

PATIENT
  Age: 17 Year
  Sex: Male

DRUGS (20)
  1. QUETIAPINE. [Concomitant]
     Active Substance: QUETIAPINE
     Indication: AUTISM SPECTRUM DISORDER
     Dosage: 600 MG, QD
     Route: 065
  2. CLONAZEPAM. [Concomitant]
     Active Substance: CLONAZEPAM
     Indication: INTELLECTUAL DISABILITY
     Dosage: 3 MG, QD
     Route: 065
  3. CLOTIAPINE [Concomitant]
     Active Substance: CLOTHIAPINE
     Indication: AUTISM SPECTRUM DISORDER
  4. RISPERIDONE. [Suspect]
     Active Substance: RISPERIDONE
     Indication: AUTISM SPECTRUM DISORDER
  5. LEVETIRACETAM. [Concomitant]
     Active Substance: LEVETIRACETAM
     Indication: INTELLECTUAL DISABILITY
     Dosage: 1500 MG, QD
     Route: 065
  6. CLOTIAPINE [Concomitant]
     Active Substance: CLOTHIAPINE
     Indication: AGGRESSION
     Dosage: 60 GTT, QD
     Route: 065
  7. PHENOBARBITAL. [Concomitant]
     Active Substance: PHENOBARBITAL
     Indication: AUTISM SPECTRUM DISORDER
     Dosage: 50 MG, QD
     Route: 065
  8. VALPROIC ACID. [Suspect]
     Active Substance: VALPROIC ACID
     Indication: AUTISM SPECTRUM DISORDER
     Dosage: 1500 MG, QD
     Route: 065
  9. RISPERIDONE. [Suspect]
     Active Substance: RISPERIDONE
     Indication: AGGRESSION
     Dosage: 2 MG, QD
     Route: 065
  10. LEVETIRACETAM. [Concomitant]
     Active Substance: LEVETIRACETAM
     Indication: AUTISM SPECTRUM DISORDER
  11. FENOBARBITAL [Concomitant]
     Active Substance: PHENOBARBITAL
     Indication: INTELLECTUAL DISABILITY
     Dosage: 50 MG, QD
     Route: 065
  12. QUETIAPINE. [Concomitant]
     Active Substance: QUETIAPINE
     Indication: INTELLECTUAL DISABILITY
     Dosage: 1200 MG, QD
     Route: 065
  13. HALOPERIDOL. [Concomitant]
     Active Substance: HALOPERIDOL
     Indication: AUTISM SPECTRUM DISORDER
     Dosage: 7.5 MG, QD
     Route: 065
  14. CLOTIAPINE [Concomitant]
     Active Substance: CLOTHIAPINE
     Indication: SLEEP DISORDER
  15. FENOBARBITAL [Concomitant]
     Active Substance: PHENOBARBITAL
     Indication: AUTISM SPECTRUM DISORDER
  16. CLONAZEPAM. [Concomitant]
     Active Substance: CLONAZEPAM
     Indication: AUTISM SPECTRUM DISORDER
  17. RISPERIDONE. [Suspect]
     Active Substance: RISPERIDONE
     Indication: SLEEP DISORDER
  18. RISPERIDONE. [Suspect]
     Active Substance: RISPERIDONE
     Indication: ANTISOCIAL BEHAVIOUR
  19. HALOPERIDOL. [Concomitant]
     Active Substance: HALOPERIDOL
     Indication: INTELLECTUAL DISABILITY
     Dosage: 9 MG, QD
     Route: 065
  20. CLOTIAPINE [Concomitant]
     Active Substance: CLOTHIAPINE
     Indication: ANTISOCIAL BEHAVIOUR

REACTIONS (2)
  - Sexual dysfunction [Unknown]
  - Drug ineffective [Unknown]
